FAERS Safety Report 9770358 (Version 2)
Quarter: 2014Q1

REPORT INFORMATION
  Report Type: Spontaneous
  Country: SA (occurrence: SA)
  Receive Date: 20131218
  Receipt Date: 20140214
  Transmission Date: 20141002
  Serious: Yes (Life-Threatening, Hospitalization)
  Sender: FDA-Public Use
  Company Number: SA-BRISTOL-MYERS SQUIBB COMPANY-19921402

PATIENT
  Age: 64 Year
  Sex: Male

DRUGS (4)
  1. ONGLYZA TABS 5 MG [Suspect]
     Indication: DIABETES MELLITUS
     Route: 048
  2. INSULIN [Concomitant]
  3. GLUCOPHAGE [Concomitant]
  4. DIAMICRON [Concomitant]

REACTIONS (1)
  - Pancreatitis acute [Unknown]
